FAERS Safety Report 6889530 (Version 5)
Quarter: 2012Q4

REPORT INFORMATION
  Report Type: 
  Country: CN (occurrence: CN)
  Receive Date: 20090122
  Receipt Date: 20121223
  Transmission Date: 20130627
  Serious: Yes (Death, Hospitalization, Other)
  Sender: FDA-Public Use
  Company Number: PHHY2009CN01735

PATIENT
  Age: 19 Year
  Sex: Male
  Weight: 70 kg

DRUGS (2)
  1. SEBIVO [Suspect]
     Indication: CHRONIC HEPATITIS B
     Dosage: 600 mg, QD
     Route: 048
     Dates: start: 20080131, end: 20081208
  2. LAMIVUDINE [Concomitant]

REACTIONS (30)
  - Multi-organ failure [Fatal]
  - Renal impairment [Fatal]
  - Shock [Fatal]
  - Cardiac arrest [Fatal]
  - Left ventricular failure [Fatal]
  - Blood pressure decreased [Fatal]
  - Rhabdomyolysis [Fatal]
  - Muscular weakness [Fatal]
  - Pain in extremity [Fatal]
  - Limb discomfort [Fatal]
  - Renal failure acute [Fatal]
  - Blood lactate dehydrogenase increased [Fatal]
  - Metabolic acidosis [Fatal]
  - Blood creatine phosphokinase increased [Fatal]
  - Lung infection [Fatal]
  - Oxygen saturation decreased [Fatal]
  - White blood cell count increased [Fatal]
  - Dyspnoea [Fatal]
  - Lung disorder [Fatal]
  - Rales [Fatal]
  - Hepatitis B [Fatal]
  - Hepatic function abnormal [Fatal]
  - Alanine aminotransferase increased [Fatal]
  - Dysphagia [Unknown]
  - Pulmonary hypertension [Not Recovered/Not Resolved]
  - Oedema peripheral [Not Recovered/Not Resolved]
  - Polymyositis [Not Recovered/Not Resolved]
  - Myositis [Not Recovered/Not Resolved]
  - Myalgia [Not Recovered/Not Resolved]
  - Marrow hyperplasia [Unknown]
